FAERS Safety Report 6441985-1 (Version None)
Quarter: 2009Q4

REPORT INFORMATION
  Report Type: 
  Country: None (occurrence: None)
  Receive Date: 20091116
  Receipt Date: 20090724
  Transmission Date: 20100525
  Serious: Yes (Hospitalization, Other)
  Sender: FDA-Public Use
  Company Number: US-PFIZER INC-2005039346

PATIENT
  Sex: Female
  Weight: 73 kg

DRUGS (9)
  1. PREMPRO [Suspect]
     Indication: HORMONE REPLACEMENT THERAPY
     Dosage: UNK
     Route: 065
     Dates: start: 19981016
  2. SYNTHROID [Concomitant]
     Indication: THYROID THERAPY
     Dosage: UNK
  3. ALTACE [Concomitant]
     Indication: BLOOD PRESSURE
     Dosage: UNK
  4. GLUCOPHAGE [Concomitant]
     Indication: DIABETES MELLITUS
     Dosage: UNK
  5. LEVOXYL [Concomitant]
     Indication: THYROID THERAPY
     Dosage: UNK
  6. DIOVANE [Concomitant]
     Indication: BLOOD PRESSURE
     Dosage: UNK
  7. VERELAN [Concomitant]
     Indication: BLOOD PRESSURE
     Dosage: UNK
  8. PAXIL [Concomitant]
     Indication: DEPRESSION
     Dosage: UNK
  9. ACTOS [Concomitant]
     Indication: DIABETES MELLITUS
     Dosage: UNK

REACTIONS (2)
  - BREAST CANCER FEMALE [None]
  - OVARIAN CANCER [None]
